FAERS Safety Report 6369121-0 (Version None)
Quarter: 2009Q3

REPORT INFORMATION
  Report Type: 
  Country: None (occurrence: None)
  Receive Date: 20090922
  Receipt Date: 20090911
  Transmission Date: 20100115
  Serious: Yes (Other)
  Sender: FDA-Public Use
  Company Number: PHHY2009AU04617

PATIENT
  Sex: Female

DRUGS (1)
  1. GLEEVEC [Suspect]
     Indication: CHRONIC MYELOID LEUKAEMIA
     Dosage: UNK
     Route: 048

REACTIONS (11)
  - ABDOMINAL DISCOMFORT [None]
  - ANAEMIA [None]
  - ANGIOPATHY [None]
  - CARDIAC DISORDER [None]
  - CARDIOSPASM [None]
  - CHEST DISCOMFORT [None]
  - CHOKING SENSATION [None]
  - DIARRHOEA [None]
  - EYE DISORDER [None]
  - THROAT TIGHTNESS [None]
  - VERTIGO [None]
